FAERS Safety Report 21994991 (Version 1)
Quarter: 2023Q1

REPORT INFORMATION
  Report Type: Spontaneous
  Country: PT (occurrence: PT)
  Receive Date: 20230215
  Receipt Date: 20230215
  Transmission Date: 20230417
  Serious: Yes (Hospitalization)
  Sender: FDA-Public Use
  Company Number: PT-009507513-2301PRT007103

PATIENT
  Age: 73 Year
  Sex: Male

DRUGS (3)
  1. PACLITAXEL [Suspect]
     Active Substance: PACLITAXEL
     Indication: Squamous cell carcinoma of lung
     Dosage: 80 MG/M2 WEEKLY
     Route: 065
     Dates: start: 20220314
  2. PEMBROLIZUMAB [Suspect]
     Active Substance: PEMBROLIZUMAB
     Indication: Squamous cell carcinoma of lung
     Dosage: 200 MILLIGRAM, Q3W
     Route: 042
     Dates: start: 20220314
  3. CARBOPLATIN [Suspect]
     Active Substance: CARBOPLATIN
     Indication: Squamous cell carcinoma of lung
     Dosage: 2 DOSAGE FORM, QW (AUC 2 WEEKLY)
     Route: 065
     Dates: start: 20220314

REACTIONS (7)
  - Respiratory tract infection [Unknown]
  - Drug intolerance [Recovered/Resolved]
  - Therapy partial responder [Unknown]
  - Pulmonary septal thickening [Unknown]
  - Decreased appetite [Unknown]
  - Lymphadenopathy [Unknown]
  - Asthenia [Recovered/Resolved]

NARRATIVE: CASE EVENT DATE: 20220101
